FAERS Safety Report 15884232 (Version 1)
Quarter: 2019Q1

REPORT INFORMATION
  Report Type: Spontaneous
  Country: US (occurrence: US)
  Receive Date: 20190129
  Receipt Date: 20190129
  Transmission Date: 20190417
  Serious: No
  Sender: FDA-Public Use
  Company Number: US-PFIZER INC-2019036494

PATIENT
  Age: 62 Year

DRUGS (2)
  1. AMIODARONE HCL [Suspect]
     Active Substance: AMIODARONE HYDROCHLORIDE
     Dosage: UNK
  2. COREG [Suspect]
     Active Substance: CARVEDILOL
     Dosage: UNK

REACTIONS (1)
  - Drug hypersensitivity [Unknown]
